FAERS Safety Report 4519439-9 (Version None)
Quarter: 2004Q4

REPORT INFORMATION
  Report Type: 
  Country: None (occurrence: None)
  Receive Date: 20041202
  Receipt Date: 20041115
  Transmission Date: 20050328
  Serious: Yes (Hospitalization)
  Sender: FDA-Public Use
  Company Number: 2004097449

PATIENT
  Age: 83 Year
  Sex: Female

DRUGS (6)
  1. ALDACTONE [Suspect]
     Indication: HYPERTENSIVE CRISIS
     Dosage: 75 MF (75 MG, ONCE DAILY), ORAL
     Route: 048
     Dates: start: 20040330, end: 20040414
  2. BISOPROLOL FUMARATE [Suspect]
     Indication: HYPERTENSIVE CRISIS
     Dosage: 25 MCG (ONCE DAILY) ORAL
     Route: 048
     Dates: start: 20040330, end: 20040414
  3. PERINDOPRIL [Suspect]
     Indication: HYPERTENSIVE CRISIS
     Dosage: 4 MG (4 MG, ONCE DAILY), ORAL
     Route: 048
     Dates: start: 20040330, end: 20040414
  4. INDAPAMIDE [Suspect]
     Indication: HYPERTENSIVE CRISIS
     Dosage: 1.5 MG (1.5 MG, ONCE
     Dates: start: 20040330, end: 20040414
  5. POTASSIUM CHLORIDE [Suspect]
     Indication: HYPOKALAEMIA
     Dosage: 2 DOSE FORMS (ONCE DAILY), ORAL
     Route: 048
     Dates: start: 20040330, end: 20040414
  6. NICARDIPINE HYDROCHLORIDE [Concomitant]

REACTIONS (9)
  - ASTHENIA [None]
  - BLOOD PRESSURE SYSTOLIC INCREASED [None]
  - BRADYCARDIA [None]
  - CARDIOMEGALY [None]
  - HAEMOGLOBIN DECREASED [None]
  - HYPERKALAEMIA [None]
  - HYPONATRAEMIA [None]
  - NAUSEA [None]
  - RENAL FAILURE [None]
